FAERS Safety Report 8560663-6 (Version None)
Quarter: 2012Q2

REPORT INFORMATION
  Report Type: 
  Country: None (occurrence: None)
  Receive Date: 20120418
  Receipt Date: 20081114
  Transmission Date: 20120825
  Serious: Yes (Other)
  Sender: FDA-Public Use
  Company Number: PHEH2008US10276

PATIENT
  Sex: Female

DRUGS (1)
  1. ENABLEX [Suspect]
     Dates: start: 20081001

REACTIONS (2)
  - NIGHTMARE [None]
  - HALLUCINATION [None]
